FAERS Safety Report 17188654 (Version 1)
Quarter: 2019Q4

REPORT INFORMATION
  Report Type: Spontaneous
  Country: US (occurrence: US)
  Receive Date: 20191222
  Receipt Date: 20191222
  Transmission Date: 20200122
  Serious: No
  Sender: FDA-Public Use
  Company Number: US-009507513-1912USA007316

PATIENT
  Age: 18 Year
  Sex: Male

DRUGS (1)
  1. ASMANEX [Suspect]
     Active Substance: MOMETASONE FUROATE
     Dosage: 1 DOSAGE FORM, QD (1 PUFF ONCE A DAY) (220 MCG, 30 DOSE)

REACTIONS (3)
  - Product dose omission [Unknown]
  - Product quality issue [Unknown]
  - Product administration error [Unknown]

NARRATIVE: CASE EVENT DATE: 20191212
